FAERS Safety Report 21006867 (Version 2)
Quarter: 2023Q1

REPORT INFORMATION
  Report Type: Spontaneous
  Country: CZ (occurrence: CZ)
  Receive Date: 20220625
  Receipt Date: 20230211
  Transmission Date: 20230417
  Serious: Yes (Other)
  Sender: FDA-Public Use
  Company Number: CZ-TEVA-2022-CZ-2048560

PATIENT
  Sex: Male

DRUGS (5)
  1. OXALIPLATIN [Suspect]
     Active Substance: OXALIPLATIN
     Indication: Colorectal cancer
     Dosage: 6 CYCLES OF FOLFOX
     Route: 065
     Dates: start: 2009, end: 200910
  2. OXALIPLATIN [Suspect]
     Active Substance: OXALIPLATIN
     Dosage: 6 CYCLES OF MFOLFOX6
     Route: 065
     Dates: end: 202003
  3. LEUCOVORIN [Suspect]
     Active Substance: LEUCOVORIN
     Indication: Colorectal cancer
     Dosage: 6 CYCLES OF FOLFOX
     Route: 065
     Dates: start: 2009, end: 200910
  4. LEUCOVORIN [Suspect]
     Active Substance: LEUCOVORIN
     Dosage: 6 CYCLES OF MFOLFOX6
     Route: 065
     Dates: end: 202003
  5. FLUOROURACIL [Suspect]
     Active Substance: FLUOROURACIL
     Indication: Colorectal cancer
     Route: 065

REACTIONS (2)
  - Neutropenia [Unknown]
  - Neuropathy peripheral [Unknown]

NARRATIVE: CASE EVENT DATE: 20090101
